FAERS Safety Report 8613283-9 (Version None)
Quarter: 2012Q3

REPORT INFORMATION
  Report Type: 
  Country: None (occurrence: None)
  Receive Date: 20120822
  Receipt Date: 20120803
  Transmission Date: 20120928
  Serious: Yes (Hospitalization, Disabling, Other)
  Sender: FDA-Public Use
  Company Number: US-009507513-1205USA04407

PATIENT

DRUGS (7)
  1. AURANOFIN [Concomitant]
     Dosage: UNK
     Dates: end: 20100510
  2. RIDAURA [Suspect]
  3. BONIVA [Suspect]
     Indication: OSTEOPENIA
     Dosage: 150 MG, UNK
     Route: 048
     Dates: start: 20080814, end: 20100315
  4. FOSAMAX [Suspect]
     Dosage: 70 MG, UNK
     Route: 048
     Dates: start: 20080502, end: 20080814
  5. FOSAMAX [Suspect]
     Indication: OSTEOPENIA
     Dosage: UNK MG, UNK
     Route: 048
     Dates: start: 20000913, end: 20100210
  6. LUVOX [Concomitant]
     Indication: ANXIETY
     Dosage: UNK
     Dates: start: 19860101
  7. PRILOSEC [Concomitant]
     Dosage: UNK
     Dates: start: 20010101

REACTIONS (40)
  - UTERINE OPERATION [None]
  - TOOTH DISORDER [None]
  - GASTRITIS [None]
  - DENTURE WEARER [None]
  - DRY SKIN [None]
  - SMEAR CERVIX ABNORMAL [None]
  - DIVERTICULUM INTESTINAL [None]
  - LENS EXTRACTION [None]
  - CEREBROVASCULAR ACCIDENT [None]
  - DENTAL PROSTHESIS USER [None]
  - IRRITABLE BOWEL SYNDROME [None]
  - HYPERTONIC BLADDER [None]
  - ADRENAL ADENOMA [None]
  - CATARACT OPERATION [None]
  - STRESS FRACTURE [None]
  - LOW TURNOVER OSTEOPATHY [None]
  - EYE PAIN [None]
  - SKIN LESION [None]
  - HEADACHE [None]
  - CONSTIPATION [None]
  - OSTEOPOROSIS [None]
  - DEHYDRATION [None]
  - ENDODONTIC PROCEDURE [None]
  - BURSITIS [None]
  - OROPHARYNGEAL PAIN [None]
  - URINARY TRACT DISORDER [None]
  - HYPOKALAEMIA [None]
  - APPENDICITIS PERFORATED [None]
  - UTERINE PROLAPSE [None]
  - SNEEZING [None]
  - EUSTACHIAN TUBE DISORDER [None]
  - FLATULENCE [None]
  - CLOSTRIDIUM DIFFICILE COLITIS [None]
  - OSTEOARTHRITIS [None]
  - ENDOMETRIAL HYPERTROPHY [None]
  - FEMUR FRACTURE [None]
  - TOOTH ABSCESS [None]
  - FALL [None]
  - PELVIC PAIN [None]
  - SYNOVIAL CYST [None]
